FAERS Safety Report 5506430-9 (Version None)
Quarter: 2007Q4

REPORT INFORMATION
  Report Type: 
  Country: None (occurrence: None)
  Receive Date: 20071101
  Receipt Date: 20071101
  Transmission Date: 20080405
  Serious: Yes (Other)
  Sender: FDA-Public Use
  Company Number: None

PATIENT
  Age: 25 Year
  Sex: Male
  Weight: 99.7913 kg

DRUGS (1)
  1. CHANTIX [Suspect]
     Indication: SMOKING CESSATION THERAPY
     Dates: start: 20070722, end: 20071022

REACTIONS (14)
  - ABNORMAL BEHAVIOUR [None]
  - ALCOHOL POISONING [None]
  - AMNESIA [None]
  - CONVERSION DISORDER [None]
  - CRYING [None]
  - DELUSION [None]
  - DEPRESSION [None]
  - DRUG DEPENDENCE [None]
  - EUPHORIC MOOD [None]
  - HALLUCINATION [None]
  - IRRITABILITY [None]
  - MENTAL DISORDER [None]
  - NIGHT SWEATS [None]
  - POISONING [None]
